FAERS Safety Report 8970530 (Version 1)
Quarter: 2012Q4

REPORT INFORMATION
  Report Type: 
  Country: US (occurrence: US)
  Receive Date: 20121218
  Receipt Date: 20121218
  Transmission Date: 20130627
  Serious: No
  Sender: FDA-Public Use
  Company Number: US-BRISTOL-MYERS SQUIBB COMPANY-16504334

PATIENT
  Sex: Female

DRUGS (1)
  1. ABILIFY [Suspect]
     Indication: AFFECTIVE DISORDER
     Dosage: Dur:4yrs.Medco supply Rx#120751158907:Taken 5tabs
Previous supply CVS:Lot#1H59978A,Exp dt:Sep20014
     Route: 048

REACTIONS (1)
  - Drug ineffective [Unknown]
